FAERS Safety Report 11576076 (Version 1)
Quarter: 2015Q3

REPORT INFORMATION
  Report Type: Report from Study
  Country: FR (occurrence: FR)
  Receive Date: 20150930
  Receipt Date: 20150930
  Transmission Date: 20151125
  Serious: Yes (Hospitalization)
  Sender: FDA-Public Use
  Company Number: FR-ASTELLAS-2015US035076

PATIENT
  Age: 67 Year
  Sex: Male

DRUGS (12)
  1. TACROLIMUS. [Suspect]
     Active Substance: TACROLIMUS
     Indication: TRANSPLANT REJECTION
     Route: 065
     Dates: start: 20150318
  2. TACROLIMUS. [Suspect]
     Active Substance: TACROLIMUS
     Dosage: 6 MG, MORNING
     Route: 048
     Dates: start: 20150404, end: 20150412
  3. TACROLIMUS. [Suspect]
     Active Substance: TACROLIMUS
     Dosage: 8.5 MG, MORNING
     Route: 048
     Dates: start: 20150429, end: 20150519
  4. AZATHIOPRINE. [Concomitant]
     Active Substance: AZATHIOPRINE
     Indication: IMMUNOSUPPRESSION
     Route: 065
     Dates: start: 201502, end: 201504
  5. BISOPROLOL [Concomitant]
     Active Substance: BISOPROLOL
     Indication: HYPERTENSION
     Dosage: 7.5 MG, DAILY DOSE
     Route: 065
     Dates: start: 201503, end: 201506
  6. AZATHIOPRINE. [Concomitant]
     Active Substance: AZATHIOPRINE
     Route: 065
     Dates: start: 201504
  7. TACROLIMUS. [Suspect]
     Active Substance: TACROLIMUS
     Dosage: 9.5 MG, MORNING
     Route: 048
     Dates: start: 20150520, end: 20150804
  8. ROVALCYTE [Suspect]
     Active Substance: VALGANCICLOVIR HYDROCHLORIDE
     Indication: CYTOMEGALOVIRUS INFECTION
     Dosage: 450 MG, MORNING
     Route: 048
     Dates: start: 20150216, end: 20150410
  9. BISOPROLOL [Concomitant]
     Active Substance: BISOPROLOL
     Dosage: 10 MG, DAILY DOSE
     Route: 065
     Dates: start: 201506, end: 201506
  10. BETAXOLOL. [Concomitant]
     Active Substance: BETAXOLOL
     Indication: HYPERTENSION
     Route: 065
     Dates: start: 201506
  11. CELLCEPT [Suspect]
     Active Substance: MYCOPHENOLATE MOFETIL\MYCOPHENOLATE MOFETIL HYDROCHLORIDE
     Indication: TRANSPLANT REJECTION
     Dosage: 250 MG, MORNING AND EVENING
     Route: 048
     Dates: start: 20150206, end: 20150403
  12. ATORVASTATIN [Concomitant]
     Active Substance: ATORVASTATIN
     Indication: LIPIDS INCREASED
     Route: 065

REACTIONS (7)
  - Blood creatinine increased [Recovered/Resolved]
  - Cytomegalovirus infection [Recovered/Resolved]
  - Hyperkeratosis [Recovered/Resolved]
  - Arrhythmia [Not Recovered/Not Resolved]
  - Leukopenia [Recovered/Resolved]
  - Epstein-Barr virus infection [Recovering/Resolving]
  - Condition aggravated [Recovered/Resolved]

NARRATIVE: CASE EVENT DATE: 20150403
